FAERS Safety Report 12983494 (Version 1)
Quarter: 2016Q4

REPORT INFORMATION
  Report Type: Spontaneous
  Country: US (occurrence: US)
  Receive Date: 20161129
  Receipt Date: 20161129
  Transmission Date: 20170207
  Serious: Yes (Hospitalization, Other)
  Sender: FDA-Public Use
  Company Number: US-009507513-1006USA02448

PATIENT
  Sex: Female
  Weight: 65.32 kg

DRUGS (4)
  1. FOSAMAX [Suspect]
     Active Substance: ALENDRONATE SODIUM
     Indication: OSTEOPENIA
     Dosage: 10 MG, QD
     Route: 048
     Dates: start: 20000406, end: 20010406
  2. FOSAMAX [Suspect]
     Active Substance: ALENDRONATE SODIUM
     Dosage: UNK UNK, UNKNOWN
     Route: 048
     Dates: start: 20080823
  3. FOSAMAX [Suspect]
     Active Substance: ALENDRONATE SODIUM
     Dosage: 70 MG, QW
     Route: 048
     Dates: start: 20010703, end: 20061201
  4. FOSAMAX PLUS D [Suspect]
     Active Substance: ALENDRONATE SODIUM\CHOLECALCIFEROL
     Indication: OSTEOPENIA
     Dosage: 70 MG, QW
     Route: 048
     Dates: start: 20070305, end: 20081018

REACTIONS (15)
  - Bronchitis [Unknown]
  - Femur fracture [Unknown]
  - Ovarian cyst [Unknown]
  - Fracture delayed union [Recovering/Resolving]
  - Muscle spasms [Unknown]
  - Musculoskeletal pain [Unknown]
  - Pain in extremity [Unknown]
  - Rotator cuff syndrome [Unknown]
  - Fall [Unknown]
  - Musculoskeletal pain [Unknown]
  - Adverse event [Unknown]
  - Cardiovascular disorder [Unknown]
  - Arthralgia [Unknown]
  - Adverse event [Unknown]
  - Oedema [Unknown]

NARRATIVE: CASE EVENT DATE: 20061019
